FAERS Safety Report 16284820 (Version 1)
Quarter: 2019Q2

REPORT INFORMATION
  Report Type: Spontaneous
  Country: US (occurrence: US)
  Receive Date: 20190402
  Receipt Date: 20190402
  Transmission Date: 20190711
  Serious: Yes (Hospitalization)
  Sender: FDA-Public Use
  Company Number: None

PATIENT
  Age: 58 Year
  Sex: Male
  Weight: 105 kg

DRUGS (1)
  1. PIPERACILLIN/TAZOBACTAM [Suspect]
     Active Substance: PIPERACILLIN SODIUM\TAZOBACTAM SODIUM
     Indication: UPPER RESPIRATORY TRACT ENDOSCOPY
     Route: 042
     Dates: start: 20190314, end: 20190315

REACTIONS (4)
  - Nephritis [None]
  - Acute kidney injury [None]
  - Chronic obstructive pulmonary disease [None]
  - Dialysis [None]

NARRATIVE: CASE EVENT DATE: 20190331
